FAERS Safety Report 25890745 (Version 1)
Quarter: 2025Q4

REPORT INFORMATION
  Report Type: Spontaneous
  Country: JP (occurrence: JP)
  Receive Date: 20251007
  Receipt Date: 20251007
  Transmission Date: 20260118
  Serious: Yes (Life-Threatening, Hospitalization)
  Sender: AMGEN
  Company Number: JP-AMGEN-JPNSP2025195241

PATIENT
  Age: 40 Year
  Sex: Female

DRUGS (6)
  1. TRASTUZUMAB [Suspect]
     Active Substance: TRASTUZUMAB
     Indication: HER2 positive breast cancer
     Dosage: UNK, THREE CYCLES
     Route: 065
  2. EPIRUBICIN [Concomitant]
     Active Substance: EPIRUBICIN
     Dosage: 360 MILLIGRAM/SQ. METER
  3. CYCLOPHOSPHAMIDE [Concomitant]
     Active Substance: CYCLOPHOSPHAMIDE
  4. CARVEDILOL [Concomitant]
     Active Substance: CARVEDILOL
  5. PERTUZUMAB [Concomitant]
     Active Substance: PERTUZUMAB
  6. PACLITAXEL [Concomitant]
     Active Substance: PACLITAXEL

REACTIONS (5)
  - Circulatory collapse [Unknown]
  - Cardiac failure [Unknown]
  - Ejection fraction decreased [Recovering/Resolving]
  - Cardiac dysfunction [Recovering/Resolving]
  - Off label use [Unknown]
